FAERS Safety Report 6687217-0 (Version None)
Quarter: 2010Q2

REPORT INFORMATION
  Report Type: 
  Country: None (occurrence: None)
  Receive Date: 20100419
  Receipt Date: 20090420
  Transmission Date: 20101027
  Serious: No
  Sender: FDA-Public Use
  Company Number: US-ABBOTT-09P-163-0569249-00

PATIENT
  Sex: Female
  Weight: 77.18 kg

DRUGS (10)
  1. ZEMPLAR [Suspect]
     Indication: RENAL DISORDER
     Dates: start: 20080701
  2. SPIRONOLACTONE [Concomitant]
     Indication: DRUG USE FOR UNKNOWN INDICATION
  3. ALDACTONE [Concomitant]
     Indication: DRUG USE FOR UNKNOWN INDICATION
  4. VIT D [Concomitant]
     Indication: DRUG USE FOR UNKNOWN INDICATION
  5. FUROSEMIDE [Concomitant]
     Indication: BLOOD PRESSURE
  6. ATENOLOL [Concomitant]
     Indication: BLOOD PRESSURE
  7. TRAMADOL HCL [Concomitant]
     Indication: PAIN
  8. VYTORIN [Concomitant]
     Indication: BLOOD CHOLESTEROL
     Dosage: 10/40 ONCE DAILY
  9. PLAVIX [Concomitant]
     Indication: DRUG USE FOR UNKNOWN INDICATION
     Route: 048
  10. COUMADIN [Concomitant]
     Indication: DRUG USE FOR UNKNOWN INDICATION

REACTIONS (1)
  - BACK PAIN [None]
